FAERS Safety Report 10011487 (Version 2)
Quarter: 2014Q2

REPORT INFORMATION
  Report Type: Spontaneous
  Country: US (occurrence: None)
  Receive Date: 20140311
  Receipt Date: 20140411
  Transmission Date: 20141212
  Serious: Yes (Death)
  Sender: FDA-Public Use
  Company Number: 2014-US-002354

PATIENT
  Sex: Female

DRUGS (47)
  1. XYREM [Suspect]
     Indication: NARCOLEPSY
     Route: 048
     Dates: start: 201002, end: 2010
  2. XYREM [Suspect]
     Indication: CATAPLEXY
     Route: 048
     Dates: start: 201002, end: 2010
  3. FERROUS FUMARATE [Concomitant]
  4. ONE A DAY WOMEN^S (ASCORBIC ACID, BETACAROTENE, BIOTIN CALCIUM CARBONATE, CALCIUM PANTOTHENATE, CHROMIC CHLORIDE, COLECALCIFEROL, CYANOCOBALAMIN, DL-ALPHA TOCOPHERYL ACETATE, FERROUS FUMARATE, FOLIC ACID, MAGNESIUM OXIDE, MANGANESE SULFATE, NICOTINAMIDE, [Concomitant]
  5. CALCIUM DS (CALCIUM CARBONATE, COLECALCIFEROL) [Concomitant]
  6. MAGNESIUM (MAGNESIUM HYDROXIDE) [Concomitant]
  7. VITAMIN C (ASCORBIC ACID) [Concomitant]
  8. SODIUM CHLORIDE [Concomitant]
  9. L-ACETYL-CARNITINE (ACETYLCARNITINE) [Concomitant]
  10. ALPHA LIPOIC ACID [Concomitant]
  11. SUPER B VITAMIN (VITAMIN B COMPLEX) [Concomitant]
  12. OMEGA 3 ( SALMON OIL) [Concomitant]
  13. OPTIFERIN-C [Concomitant]
  14. ESTER-C WITH BIOFLAVINOIDS [Concomitant]
  15. CORTEX VEGETARIAN CAPSULES [Concomitant]
  16. UBIQUINOL CO Q 10 [Concomitant]
  17. ULTRA B 100 COMPLEX [Concomitant]
  18. MEDI-CLEAR PROTEIN SUPPLEMENT [Concomitant]
  19. GRAND FLEX-GLUCOSAMINE [Concomitant]
  20. DHEA [Concomitant]
  21. CAL-MAG [Concomitant]
  22. CLONAZEPAM [Concomitant]
  23. RANITIDINE [Concomitant]
  24. CARDURA [Concomitant]
  25. K-DUR [Concomitant]
  26. LYRICA [Concomitant]
  27. TEKTURNA [Concomitant]
  28. FERROUS SULFATE [Concomitant]
  29. MESTINON [Concomitant]
  30. MIRTAZAPINE [Concomitant]
  31. LEVSIN [Concomitant]
  32. AMITIZA [Concomitant]
  33. L-CARNITINE [Concomitant]
  34. ZANAFLEX [Concomitant]
  35. VOLTAREN [Concomitant]
  36. NITROQUICK [Concomitant]
  37. CLARITIN [Concomitant]
  38. IMITREX [Concomitant]
  39. CATAPRES [Concomitant]
  40. BETAPACE [Concomitant]
  41. NAPROSYN [Concomitant]
  42. HYDROCORTISONE [Concomitant]
  43. FLUDROCORTISONE ACETATE [Concomitant]
  44. XYZAL [Concomitant]
  45. BUSPAR [Concomitant]
  46. CIPRO [Concomitant]
  47. DIFLUCAN [Concomitant]

REACTIONS (2)
  - Death [None]
  - Phaeochromocytoma [None]
